FAERS Safety Report 7671636-X (Version None)
Quarter: 2011Q3

REPORT INFORMATION
  Report Type: 
  Country: None (occurrence: None)
  Receive Date: 20110803
  Receipt Date: 20110711
  Transmission Date: 20111222
  Serious: Yes (Hospitalization)
  Sender: FDA-Public Use
  Company Number: 2011PROUSA00254

PATIENT
  Age: 77 Year
  Sex: Male
  Weight: 49.4 kg

DRUGS (10)
  1. FENTORA (FENTANYL CITRATE) [Concomitant]
  2. PROVENGE [Suspect]
     Dosage: 250 ML, SINGLE, INTRAVENOUS
     Route: 042
     Dates: start: 20101216, end: 20101216
  3. DURAGESIC (ORPHENADRINE CITRATE, PARACETAMOL) [Concomitant]
  4. ZOFRAN [Concomitant]
  5. CARAFATE [Concomitant]
  6. PANTOPRAZOLE [Concomitant]
  7. SANCUSO (GRANISETRON HYDROCHLORIDE) [Concomitant]
  8. ANTIVERT [Concomitant]
  9. PROVENGE [Suspect]
     Indication: PROSTATE CANCER METASTATIC
     Dosage: 250 ML, SINGLE, INTRAVENOUS
     Route: 042
     Dates: start: 20100812, end: 20100812
  10. PROVENGE [Suspect]
     Dosage: 250 ML, SINGLE, INTRAVENOUS
     Route: 042
     Dates: start: 20100927, end: 20100927

REACTIONS (26)
  - FLUID INTAKE REDUCED [None]
  - METASTASES TO BONE [None]
  - CSF PROTEIN INCREASED [None]
  - HYPONATRAEMIA [None]
  - BONE DISORDER [None]
  - NEOPLASM PROGRESSION [None]
  - MALNUTRITION [None]
  - APHAGIA [None]
  - ARTHRALGIA [None]
  - VASOGENIC CEREBRAL OEDEMA [None]
  - MYALGIA [None]
  - BACTERIAL TEST POSITIVE [None]
  - BLOOD LACTATE DEHYDROGENASE INCREASED [None]
  - BLOOD BILIRUBIN INCREASED [None]
  - PANCYTOPENIA [None]
  - MENISCUS LESION [None]
  - FATIGUE [None]
  - CONFUSIONAL STATE [None]
  - BLOOD ALKALINE PHOSPHATASE INCREASED [None]
  - METASTASES TO CENTRAL NERVOUS SYSTEM [None]
  - PAIN IN EXTREMITY [None]
  - CACHEXIA [None]
  - WEIGHT DECREASED [None]
  - HELICOBACTER GASTRITIS [None]
  - ASTHENIA [None]
  - COGNITIVE DISORDER [None]
